FAERS Safety Report 14454038 (Version 2)
Quarter: 2018Q1

REPORT INFORMATION
  Report Type: Spontaneous
  Country: US (occurrence: US)
  Receive Date: 20180129
  Receipt Date: 20180129
  Transmission Date: 20180509
  Serious: No
  Sender: FDA-Public Use
  Company Number: US-ALLERGAN-1724974US

PATIENT
  Sex: Female
  Weight: 43.54 kg

DRUGS (4)
  1. TAZORAC [Suspect]
     Active Substance: TAZAROTENE
     Indication: ACNE
     Dosage: UNK, QHS
     Route: 061
  2. TAZORAC [Suspect]
     Active Substance: TAZAROTENE
     Indication: ACNE
  3. TAZORAC [Suspect]
     Active Substance: TAZAROTENE
     Indication: SKIN DISORDER
     Dosage: 3-4 TIMES PER WEEK, QHS
     Route: 061
     Dates: start: 20081021
  4. TAZORAC [Suspect]
     Active Substance: TAZAROTENE
     Indication: SKIN DISORDER
     Dosage: 3-4 TIMES PER WEEK, QHS
     Route: 061

REACTIONS (8)
  - Product administered at inappropriate site [Unknown]
  - Application site erythema [Recovered/Resolved]
  - Application site discolouration [Recovering/Resolving]
  - Skin hyperpigmentation [Recovering/Resolving]
  - Product label confusion [Unknown]
  - Off label use [Unknown]
  - Swelling [Recovering/Resolving]
  - Expired product administered [Unknown]

NARRATIVE: CASE EVENT DATE: 2017
